FAERS Safety Report 21976478 (Version 1)
Quarter: 2023Q1

REPORT INFORMATION
  Report Type: Spontaneous
  Country: GB (occurrence: GB)
  Receive Date: 20230210
  Receipt Date: 20230210
  Transmission Date: 20230418
  Serious: Yes (Hospitalization)
  Sender: FDA-Public Use
  Company Number: None

PATIENT
  Sex: Female
  Weight: 107 kg

DRUGS (3)
  1. AMITRIPTYLINE [Suspect]
     Active Substance: AMITRIPTYLINE
     Indication: Product used for unknown indication
     Dates: start: 20230121, end: 20230122
  2. DESOGESTREL [Concomitant]
     Active Substance: DESOGESTREL
     Dates: start: 20110709
  3. LISINOPRIL [Concomitant]
     Active Substance: LISINOPRIL
     Dates: start: 20080523

REACTIONS (1)
  - Diplopia [Recovering/Resolving]

NARRATIVE: CASE EVENT DATE: 20230123
